FAERS Safety Report 4774836-1 (Version None)
Quarter: 2005Q3

REPORT INFORMATION
  Report Type: 
  Country: None (occurrence: None)
  Receive Date: 20050919
  Receipt Date: 20050906
  Transmission Date: 20060218
  Serious: Yes (Hospitalization)
  Sender: FDA-Public Use
  Company Number: 2005BI014103

PATIENT
  Age: 54 Year
  Sex: Female
  Weight: 58.9676 kg

DRUGS (2)
  1. AVONEX [Suspect]
     Indication: MULTIPLE SCLEROSIS
     Dosage: 30 UG; QW; IM
     Route: 030
     Dates: start: 19960101, end: 20030801
  2. AVONEX [Suspect]
     Indication: MULTIPLE SCLEROSIS
     Dosage: 30 UG; QW; IM
     Route: 030
     Dates: start: 20030801

REACTIONS (12)
  - BLOOD CHOLESTEROL INCREASED [None]
  - DEPRESSION [None]
  - DIFFICULTY IN WALKING [None]
  - INJECTION SITE CELLULITIS [None]
  - INJECTION SITE MASS [None]
  - LIVER FUNCTION TEST ABNORMAL [None]
  - MUSCLE SPASTICITY [None]
  - NAUSEA [None]
  - OSTEOPENIA [None]
  - PAIN [None]
  - URINARY INCONTINENCE [None]
  - WEIGHT DECREASED [None]
